FAERS Safety Report 6245833-4 (Version None)
Quarter: 2009Q2

REPORT INFORMATION
  Report Type: 
  Country: None (occurrence: None)
  Receive Date: 20090625
  Receipt Date: 20090515
  Transmission Date: 20091009
  Serious: Yes (Death, Hospitalization, Other)
  Sender: FDA-Public Use
  Company Number: US-BAXTER-2008BH010996

PATIENT
  Age: 70 Year
  Sex: Male
  Weight: 89 kg

DRUGS (33)
  1. HEPARIN SODIUM INJECTION [Suspect]
     Indication: ACUTE CORONARY SYNDROME
     Route: 042
     Dates: start: 20080318, end: 20080318
  2. HEPARIN SODIUM INJECTION [Suspect]
     Indication: ACUTE MYOCARDIAL INFARCTION
     Route: 042
     Dates: start: 20080318, end: 20080318
  3. HEPARIN SODIUM INJECTION [Suspect]
     Indication: ATRIAL FIBRILLATION
     Route: 042
     Dates: start: 20080318, end: 20080318
  4. HEPARIN SODIUM INJECTION [Suspect]
     Indication: ATRIAL FLUTTER
     Route: 042
     Dates: start: 20080318, end: 20080318
  5. HEPARIN SODIUM INJECTION [Suspect]
     Indication: CORONARY ARTERY BYPASS
     Route: 042
     Dates: start: 20080318, end: 20080318
  6. HEPARIN SODIUM INJECTION [Suspect]
     Route: 042
     Dates: start: 20080327, end: 20080327
  7. HEPARIN SODIUM INJECTION [Suspect]
     Route: 042
     Dates: start: 20080327, end: 20080327
  8. HEPARIN SODIUM INJECTION [Suspect]
     Route: 042
     Dates: start: 20080327, end: 20080327
  9. HEPARIN SODIUM INJECTION [Suspect]
     Route: 042
     Dates: start: 20080327, end: 20080327
  10. HEPARIN SODIUM INJECTION [Suspect]
     Route: 042
     Dates: start: 20080327, end: 20080327
  11. HEPARIN SODIUM INJECTION [Suspect]
     Route: 065
     Dates: start: 20080328, end: 20080328
  12. HEPARIN SODIUM INJECTION [Suspect]
     Route: 065
     Dates: start: 20080328, end: 20080328
  13. HEPARIN SODIUM INJECTION [Suspect]
     Route: 065
     Dates: start: 20080328, end: 20080328
  14. HEPARIN SODIUM INJECTION [Suspect]
     Route: 065
     Dates: start: 20080328, end: 20080328
  15. HEPARIN SODIUM INJECTION [Suspect]
     Route: 065
     Dates: start: 20080328, end: 20080328
  16. HEPARIN SODIUM INJECTION [Suspect]
     Route: 065
     Dates: start: 20080328, end: 20080328
  17. HEPARIN SODIUM INJECTION [Suspect]
     Route: 065
     Dates: start: 20080328, end: 20080328
  18. HEPARIN SODIUM INJECTION [Suspect]
     Route: 065
     Dates: start: 20080328, end: 20080328
  19. HEPARIN SODIUM INJECTION [Suspect]
     Route: 065
     Dates: start: 20080328, end: 20080328
  20. HEPARIN SODIUM INJECTION [Suspect]
     Route: 065
     Dates: start: 20080328, end: 20080328
  21. HEPARIN SODIUM 5,000 UNITS IN DEXTROSE 5% [Suspect]
     Indication: ACUTE CORONARY SYNDROME
     Route: 042
     Dates: start: 20080318, end: 20080301
  22. HEPARIN SODIUM 5,000 UNITS IN DEXTROSE 5% [Suspect]
     Indication: ACUTE MYOCARDIAL INFARCTION
     Route: 042
     Dates: start: 20080318, end: 20080301
  23. HEPARIN SODIUM 5,000 UNITS IN DEXTROSE 5% [Suspect]
     Indication: ATRIAL FIBRILLATION
     Route: 042
     Dates: start: 20080318, end: 20080301
  24. HEPARIN SODIUM 5,000 UNITS IN DEXTROSE 5% [Suspect]
     Indication: ATRIAL FLUTTER
     Route: 042
     Dates: start: 20080318, end: 20080301
  25. HEPARIN SODIUM 5,000 UNITS IN DEXTROSE 5% [Suspect]
     Route: 042
     Dates: start: 20080327, end: 20080328
  26. HEPARIN SODIUM 5,000 UNITS IN DEXTROSE 5% [Suspect]
     Route: 042
     Dates: start: 20080327, end: 20080328
  27. HEPARIN SODIUM 5,000 UNITS IN DEXTROSE 5% [Suspect]
     Route: 042
     Dates: start: 20080327, end: 20080328
  28. HEPARIN SODIUM 5,000 UNITS IN DEXTROSE 5% [Suspect]
     Route: 042
     Dates: start: 20080327, end: 20080328
  29. METFORMIN HCL [Concomitant]
     Indication: DRUG USE FOR UNKNOWN INDICATION
     Route: 048
  30. PERCOCET [Concomitant]
     Indication: PAIN
     Route: 065
  31. DARVOCET-N 100 [Concomitant]
     Indication: PAIN
     Route: 065
  32. VICODIN [Concomitant]
     Indication: PAIN
     Route: 065
  33. ACTOS [Concomitant]
     Indication: DRUG USE FOR UNKNOWN INDICATION
     Route: 048

REACTIONS (24)
  - ANOREXIA [None]
  - ASTHENIA [None]
  - ATRIAL FIBRILLATION [None]
  - ATRIAL FLUTTER [None]
  - CARDIAC VALVE VEGETATION [None]
  - CITROBACTER INFECTION [None]
  - DEEP VEIN THROMBOSIS [None]
  - DIZZINESS [None]
  - ENTEROCOCCAL INFECTION [None]
  - FAILURE TO THRIVE [None]
  - HEART RATE IRREGULAR [None]
  - HEPARIN-INDUCED THROMBOCYTOPENIA [None]
  - HYPOTENSION [None]
  - MALNUTRITION [None]
  - MITRAL VALVE INCOMPETENCE [None]
  - PLEURAL EFFUSION [None]
  - PULMONARY EMBOLISM [None]
  - PYREXIA [None]
  - SERRATIA INFECTION [None]
  - THROMBOSIS [None]
  - TONGUE PARALYSIS [None]
  - TREMOR [None]
  - URINARY TRACT INFECTION BACTERIAL [None]
  - WHITE BLOOD CELL COUNT DECREASED [None]
